FAERS Safety Report 19169459 (Version 3)
Quarter: 2021Q2

REPORT INFORMATION
  Report Type: Report from Study
  Country: ES (occurrence: ES)
  Receive Date: 20210422
  Receipt Date: 20210503
  Transmission Date: 20210717
  Serious: Yes (Life-Threatening, Other)
  Sender: FDA-Public Use
  Company Number: ES-VIIV HEALTHCARE LIMITED-ES2021GSK090270

PATIENT
  Age: 43 Year
  Sex: Male
  Weight: 53.2 kg

DRUGS (3)
  1. DOLUTEGRAVIR + LAMIVUDINE [Suspect]
     Active Substance: DOLUTEGRAVIR SODIUM\LAMIVUDINE
     Indication: HIV INFECTION
     Dosage: UNK
     Dates: start: 20210318, end: 20210418
  2. HIDROFEROL [Concomitant]
     Active Substance: CALCIFEDIOL
     Indication: VITAMIN SUPPLEMENTATION
     Dosage: 0.266 MG
     Route: 048
     Dates: start: 20180802
  3. LORATADINE. [Concomitant]
     Active Substance: LORATADINE
     Indication: ALLERGIC COUGH
     Dosage: 10 MG
     Route: 048
     Dates: start: 20210409, end: 20210409

REACTIONS (1)
  - Hepatitis viral [Not Recovered/Not Resolved]

NARRATIVE: CASE EVENT DATE: 20210415
